FAERS Safety Report 19906606 (Version 1)
Quarter: 2021Q4

REPORT INFORMATION
  Report Type: Spontaneous
  Country: US (occurrence: US)
  Receive Date: 20211001
  Receipt Date: 20211001
  Transmission Date: 20220303
  Serious: Yes (Life-Threatening)
  Sender: FDA-Public Use
  Company Number: None

PATIENT
  Age: 73 Year
  Sex: Female
  Weight: 81.8 kg

DRUGS (3)
  1. BARICITINIB [Suspect]
     Active Substance: BARICITINIB
     Indication: COVID-19
     Route: 048
     Dates: start: 20210911, end: 20210924
  2. REMDESIVIR [Concomitant]
     Active Substance: REMDESIVIR
     Dates: start: 20210908, end: 20210912
  3. DEXAMETHASONE [Concomitant]
     Active Substance: DEXAMETHASONE
     Dates: start: 20210907, end: 20210919

REACTIONS (4)
  - Sputum culture positive [None]
  - Staphylococcal infection [None]
  - Culture urine positive [None]
  - Blood culture positive [None]

NARRATIVE: CASE EVENT DATE: 20210925
